FAERS Safety Report 23923267 (Version 1)
Quarter: 2024Q2

REPORT INFORMATION
  Report Type: Spontaneous
  Country: FR (occurrence: FR)
  Receive Date: 20240531
  Receipt Date: 20240531
  Transmission Date: 20240716
  Serious: Yes (Other)
  Sender: FDA-Public Use
  Company Number: FR-GLAXOSMITHKLINE-FR2024EME066900

PATIENT

DRUGS (4)
  1. LAMICTAL [Suspect]
     Active Substance: LAMOTRIGINE
     Indication: Product used for unknown indication
     Dosage: 400 MG
     Dates: start: 2020
  2. BRINTELLIX [Suspect]
     Active Substance: VORTIOXETINE HYDROBROMIDE
     Indication: Product used for unknown indication
     Dosage: 15 MG
  3. BROMAZEPAM [Suspect]
     Active Substance: BROMAZEPAM
     Indication: Product used for unknown indication
     Dosage: 18 MG, 6/4 MORNING AND 5/4 NOON
     Dates: start: 2021
  4. XANAX [Suspect]
     Active Substance: ALPRAZOLAM
     Indication: Product used for unknown indication
     Dosage: UNK

REACTIONS (10)
  - Systemic lupus erythematosus [Unknown]
  - Weight decreased [Unknown]
  - Photosensitivity reaction [Unknown]
  - Condition aggravated [Unknown]
  - Eye irritation [Unknown]
  - Burning sensation [Unknown]
  - Nightmare [Not Recovered/Not Resolved]
  - Immune system disorder [Unknown]
  - Head discomfort [Unknown]
  - Neurological symptom [Unknown]
